FAERS Safety Report 4957018-X (Version None)
Quarter: 2006Q1

REPORT INFORMATION
  Report Type: 
  Country: None (occurrence: None)
  Receive Date: 20060329
  Receipt Date: 20060317
  Transmission Date: 20060701
  Serious: Yes (Other)
  Sender: FDA-Public Use
  Company Number: BR-JNJFOC-20060304762

PATIENT
  Age: 34 Year
  Sex: Female
  Weight: 99 kg

DRUGS (4)
  1. TOPAMAX [Suspect]
     Indication: EPILEPSY
  2. HIDANTAL [Concomitant]
     Indication: EPILEPSY
  3. GARDENAL [Concomitant]
     Indication: EPILEPSY
  4. RIVOTRIL [Concomitant]
     Indication: EPILEPSY

REACTIONS (3)
  - DYSPNOEA [None]
  - MOVEMENT DISORDER [None]
  - PAIN [None]
